FAERS Safety Report 7268251-9 (Version None)
Quarter: 2011Q1

REPORT INFORMATION
  Report Type: 
  Country: None (occurrence: None)
  Receive Date: 20110124
  Receipt Date: 20110111
  Transmission Date: 20110831
  Serious: Yes (Hospitalization)
  Sender: FDA-Public Use
  Company Number: JP-ACCORD-005742

PATIENT
  Sex: Female
  Weight: 70 kg

DRUGS (1)
  1. PACLITAXEL [Suspect]
     Indication: BREAST CANCER METASTATIC
     Dosage: 120.00-MG/M2, 80.00-MG/M2

REACTIONS (2)
  - LEUKOPENIA [None]
  - DECREASED APPETITE [None]
